FAERS Safety Report 14912763 (Version 1)
Quarter: 2018Q2

REPORT INFORMATION
  Report Type: Spontaneous
  Country: US (occurrence: US)
  Receive Date: 20180501
  Receipt Date: 20180501
  Transmission Date: 20180711
  Serious: Yes (Hospitalization)
  Sender: FDA-Public Use
  Company Number: None

PATIENT
  Sex: Male
  Weight: 85.1 kg

DRUGS (1)
  1. XELODA [Suspect]
     Active Substance: CAPECITABINE
     Dates: start: 20180321

REACTIONS (6)
  - Tachycardia [None]
  - Inflammation [None]
  - Vomiting [None]
  - Rectal perforation [None]
  - Syncope [None]
  - Bacterial infection [None]

NARRATIVE: CASE EVENT DATE: 20180408
